FAERS Safety Report 6587538-6 (Version None)
Quarter: 2010Q1

REPORT INFORMATION
  Report Type: 
  Country: None (occurrence: None)
  Receive Date: 20100218
  Receipt Date: 20070403
  Transmission Date: 20100710
  Serious: Yes (Hospitalization, Other)
  Sender: FDA-Public Use
  Company Number: US-ASTRAZENECA-2006UW06955

PATIENT
  Age: 17286 Day
  Sex: Male
  Weight: 97.5 kg

DRUGS (19)
  1. SEROQUEL [Suspect]
     Indication: DEPRESSION
     Route: 048
     Dates: start: 19991101
  2. SEROQUEL [Suspect]
     Indication: SLEEP DISORDER
     Route: 048
     Dates: start: 19991101
  3. SEROQUEL [Suspect]
     Route: 048
     Dates: start: 19991101
  4. SEROQUEL [Suspect]
     Route: 048
     Dates: start: 19991101
  5. METHADONE HCL [Concomitant]
     Indication: BACK PAIN
  6. TETRACYCLINE [Concomitant]
     Indication: TOOTH ABSCESS
     Dates: end: 20030401
  7. LIPITOR [Concomitant]
     Indication: HYPERLIPIDAEMIA
     Dates: start: 20010101
  8. TOPROL-XL [Concomitant]
     Indication: HYPERTENSION
  9. HYZAAR [Concomitant]
     Indication: HYPERTENSION
  10. GLUCOPHAGE [Concomitant]
  11. XANAX [Concomitant]
  12. PAXIL [Concomitant]
     Dates: start: 19991101
  13. ALTACE [Concomitant]
     Dates: start: 20010829
  14. PLAVIX [Concomitant]
     Dates: start: 20010829
  15. VALIUM [Concomitant]
     Dates: start: 20020430
  16. DARVOCET [Concomitant]
     Dates: start: 20020430
  17. EFFEXOR [Concomitant]
     Dates: start: 20020430
  18. PHENERGAN HCL [Concomitant]
     Dates: start: 20040817
  19. CLONIDINE [Concomitant]
     Dates: start: 20011220

REACTIONS (18)
  - ATELECTASIS [None]
  - AZOTAEMIA [None]
  - BACK PAIN [None]
  - CEREBROVASCULAR ACCIDENT [None]
  - CHOLECYSTECTOMY [None]
  - CHOLECYSTITIS CHRONIC [None]
  - DEPRESSION [None]
  - DIABETES MELLITUS [None]
  - GASTROENTERITIS [None]
  - ORCHITIS [None]
  - OSTEITIS [None]
  - OVERWEIGHT [None]
  - PANCREATITIS [None]
  - PANCREATITIS ACUTE [None]
  - PAROTITIS [None]
  - TOOTH ABSCESS [None]
  - TYPE 2 DIABETES MELLITUS [None]
  - WEIGHT INCREASED [None]
